FAERS Safety Report 7293337-2 (Version None)
Quarter: 2011Q1

REPORT INFORMATION
  Report Type: 
  Country: None (occurrence: None)
  Receive Date: 20110215
  Receipt Date: 20110202
  Transmission Date: 20110831
  Serious: Yes (Hospitalization, Other)
  Sender: FDA-Public Use
  Company Number: US-WATSON-2011-01861

PATIENT
  Age: 63 Year
  Sex: Male

DRUGS (3)
  1. MYCOPHENOLATE MOFETIL [Suspect]
     Indication: IMMUNOSUPPRESSION
     Dosage: UNK
  2. PREDNISONE (WATSON LABORATORIES) [Suspect]
     Indication: IMMUNOSUPPRESSION
     Dosage: UNK
  3. TACROLIMUS [Suspect]
     Indication: PROPHYLAXIS AGAINST TRANSPLANT REJECTION
     Dosage: UNK

REACTIONS (4)
  - TOXIC OPTIC NEUROPATHY [None]
  - MYOPATHY [None]
  - HEARING IMPAIRED [None]
  - VISUAL IMPAIRMENT [None]
